FAERS Safety Report 16230432 (Version 2)
Quarter: 2019Q2

REPORT INFORMATION
  Report Type: Report from Study
  Country: US (occurrence: US)
  Receive Date: 20190423
  Receipt Date: 20190606
  Transmission Date: 20190711
  Serious: Yes (Other)
  Sender: FDA-Public Use
  Company Number: PHEH2019US016583

PATIENT
  Sex: Female

DRUGS (1)
  1. ENTRESTO [Suspect]
     Active Substance: SACUBITRIL\VALSARTAN
     Indication: CARDIAC FAILURE
     Dosage: UNK UNK, BID
     Route: 048

REACTIONS (9)
  - Peripheral coldness [Unknown]
  - Asthenia [Unknown]
  - Syncope [Unknown]
  - Paraesthesia [Unknown]
  - Fatigue [Unknown]
  - Panic attack [Unknown]
  - Blood glucose increased [Unknown]
  - Depressed mood [Unknown]
  - Drug ineffective [Unknown]
